FAERS Safety Report 23060808 (Version 2)
Quarter: 2024Q3

REPORT INFORMATION
  Report Type: Report from Study
  Country: DE (occurrence: DE)
  Receive Date: 20231012
  Receipt Date: 20240816
  Transmission Date: 20241016
  Serious: Yes (Hospitalization, Other)
  Sender: SANDOZ
  Company Number: DE-NOVPHSZ-PHHY2019DE104459

PATIENT
  Age: 58 Year
  Sex: Female
  Weight: 102 kg

DRUGS (7)
  1. FILGRASTIM [Suspect]
     Active Substance: FILGRASTIM
     Dosage: 3840 UG, (8X48 MU/0.5ML)
     Route: 058
     Dates: start: 20130228, end: 20130304
  2. FILGRASTIM [Suspect]
     Active Substance: FILGRASTIM
     Dosage: 3840 UG, UNK (8X48 MU/0.5ML)
     Route: 058
     Dates: start: 20130304, end: 20180814
  3. FILGRASTIM [Suspect]
     Active Substance: FILGRASTIM
     Indication: Haematopoietic stem cell mobilisation
     Dosage: UNK
     Route: 065
     Dates: start: 20050115
  4. IBUPROFEN [Concomitant]
     Active Substance: IBUPROFEN
     Indication: Pain
     Dosage: 600 MG, PRN
     Route: 065
     Dates: start: 20180716
  5. PANTOZOL [Concomitant]
     Active Substance: PANTOPRAZOLE SODIUM
     Indication: Prophylaxis
     Dosage: 20 MG (1-0-0), QD
     Route: 048
     Dates: start: 20180716, end: 20180814
  6. LEVOTHYROXINE SODIUM\POTASSIUM IODIDE [Concomitant]
     Active Substance: LEVOTHYROXINE SODIUM\POTASSIUM IODIDE
     Indication: Hypothyroidism
     Dosage: UNK
     Route: 048
     Dates: start: 200501
  7. XARELTO [Concomitant]
     Active Substance: RIVAROXABAN
     Indication: Thrombosis prophylaxis
     Dosage: 10 MG, PRN
     Route: 065
     Dates: start: 20180716, end: 20180813

REACTIONS (7)
  - Tibia fracture [Recovered/Resolved]
  - Accident [Recovered/Resolved]
  - Ligament rupture [Recovered/Resolved]
  - Osteoarthritis [Recovered/Resolved]
  - Breast cancer [Recovering/Resolving]
  - Bone pain [Recovered/Resolved]
  - Hypertension [Not Recovered/Not Resolved]

NARRATIVE: CASE EVENT DATE: 20130301
